FAERS Safety Report 7920377-X (Version None)
Quarter: 2011Q4

REPORT INFORMATION
  Report Type: 
  Country: None (occurrence: None)
  Receive Date: 20111117
  Receipt Date: 20111114
  Transmission Date: 20120403
  Serious: Yes (Other)
  Sender: FDA-Public Use
  Company Number: US-BAYER-2011-110832

PATIENT
  Age: 95 Year
  Sex: Female

DRUGS (3)
  1. CITRACAL MAXIMUM [Suspect]
     Dosage: 1 DF, QD
  2. DIOVAN [Concomitant]
  3. EVISTA [Concomitant]

REACTIONS (1)
  - CHOKING [None]
